FAERS Safety Report 15838515 (Version 1)
Quarter: 2019Q1

REPORT INFORMATION
  Report Type: Spontaneous
  Country: US (occurrence: US)
  Receive Date: 20190117
  Receipt Date: 20190117
  Transmission Date: 20190417
  Serious: No
  Sender: FDA-Public Use
  Company Number: US-INCYTE CORPORATION-2019IN000103

PATIENT

DRUGS (1)
  1. JAKAFI [Suspect]
     Active Substance: RUXOLITINIB
     Dosage: 20 MG, BID
     Route: 065
     Dates: start: 20181218

REACTIONS (7)
  - Back disorder [Unknown]
  - Hypersensitivity [Unknown]
  - Discharge [Unknown]
  - Procedural pain [Unknown]
  - Fatigue [Unknown]
  - Headache [Unknown]
  - Endodontic procedure [Unknown]
